FAERS Safety Report 10177525 (Version 1)
Quarter: 2014Q2

REPORT INFORMATION
  Report Type: Spontaneous
  Country: IT (occurrence: IT)
  Receive Date: 20140516
  Receipt Date: 20140516
  Transmission Date: 20141212
  Serious: Yes (Other)
  Sender: FDA-Public Use
  Company Number: IT-MYLANLABS-2014S1010690

PATIENT
  Age: 45 Year
  Sex: Female

DRUGS (3)
  1. PACLITAXEL [Suspect]
     Indication: BREAST CANCER
     Route: 042
     Dates: start: 20140416
  2. TRIMETON /00072502/ [Concomitant]
     Indication: PREMEDICATION
     Dosage: 10 MG/ML
     Route: 042
     Dates: start: 20140416, end: 20140424
  3. ONDANSETRON KABI [Concomitant]
     Indication: PREMEDICATION
     Route: 042
     Dates: start: 20140416, end: 20140424

REACTIONS (2)
  - Choking sensation [Recovered/Resolved]
  - Feeling hot [Recovered/Resolved]
